FAERS Safety Report 12379440 (Version 1)
Quarter: 2016Q2

REPORT INFORMATION
  Report Type: Spontaneous
  Country: US (occurrence: US)
  Receive Date: 20160517
  Receipt Date: 20160517
  Transmission Date: 20160815
  Serious: No
  Sender: FDA-Public Use
  Company Number: US-TEIKOKU PHARMA USA-TPU2015-00320

PATIENT
  Age: 56 Year
  Sex: Female
  Weight: 99.88 kg

DRUGS (3)
  1. FLEXRIM [Concomitant]
     Dates: start: 2011
  2. LIDODERM [Suspect]
     Active Substance: LIDOCAINE
     Indication: BACK PAIN
     Route: 061
     Dates: start: 20150701, end: 20150704
  3. NORCO [Concomitant]
     Active Substance: ACETAMINOPHEN\HYDROCODONE BITARTRATE
     Indication: BACK PAIN
     Dates: start: 2011

REACTIONS (7)
  - Peripheral swelling [Recovered/Resolved]
  - Urticaria [Recovered/Resolved]
  - Migraine [Recovered/Resolved]
  - Eye swelling [Recovered/Resolved]
  - Dyspnoea [Recovered/Resolved]
  - Swelling face [Recovered/Resolved]
  - Sensory disturbance [Recovered/Resolved]

NARRATIVE: CASE EVENT DATE: 20150701
